FAERS Safety Report 23862887 (Version 1)
Quarter: 2024Q2

REPORT INFORMATION
  Report Type: Spontaneous
  Country: EG (occurrence: EG)
  Receive Date: 20240516
  Receipt Date: 20240516
  Transmission Date: 20240716
  Serious: Yes (Life-Threatening)
  Sender: FDA-Public Use
  Company Number: EG-PFIZER INC-PV202400063405

PATIENT
  Age: 61 Year
  Sex: Female

DRUGS (2)
  1. CARBOPLATIN [Suspect]
     Active Substance: CARBOPLATIN
     Dosage: 300 MG (DILUTED IN 500 ML NORMAL SALINE)
  2. TAXOL [Suspect]
     Active Substance: PACLITAXEL
     Dosage: UNK

REACTIONS (2)
  - Laryngospasm [Recovered/Resolved]
  - Dyspnoea [Recovered/Resolved]
